FAERS Safety Report 23955996 (Version 3)
Quarter: 2024Q3

REPORT INFORMATION
  Report Type: Report from Study
  Country: CA (occurrence: CA)
  Receive Date: 20240610
  Receipt Date: 20240830
  Transmission Date: 20241016
  Serious: Yes (Other)
  Sender: JOHNSON AND JOHNSON
  Company Number: CA-JNJFOC-20240608794

PATIENT
  Age: 47 Year
  Sex: Male
  Weight: 98 kg

DRUGS (3)
  1. REMICADE [Suspect]
     Active Substance: INFLIXIMAB
     Indication: Psoriasis
     Route: 041
  2. REMICADE [Suspect]
     Active Substance: INFLIXIMAB
     Indication: Psoriatic arthropathy
     Route: 041
  3. REMICADE [Suspect]
     Active Substance: INFLIXIMAB
     Indication: Ankylosing spondylitis
     Route: 041

REACTIONS (2)
  - Psoriatic arthropathy [Not Recovered/Not Resolved]
  - Herpes zoster [Unknown]
